FAERS Safety Report 5298981-X (Version None)
Quarter: 2007Q2

REPORT INFORMATION
  Report Type: 
  Country: None (occurrence: None)
  Receive Date: 20070417
  Receipt Date: 20070404
  Transmission Date: 20071010
  Serious: Yes (Hospitalization, Other)
  Sender: FDA-Public Use
  Company Number: US-AMGEN-US214405

PATIENT
  Sex: Male
  Weight: 70.9 kg

DRUGS (7)
  1. ARANESP [Suspect]
     Indication: ANAEMIA OF MALIGNANT DISEASE
     Dates: start: 20030326, end: 20070305
  2. FLUCONAZOLE [Concomitant]
  3. DAPSONE [Concomitant]
  4. VALTREX [Concomitant]
  5. ZOMETA [Concomitant]
     Dates: start: 20061103
  6. ELAVIL [Concomitant]
  7. NEUPOGEN [Concomitant]
     Dates: start: 20061030

REACTIONS (8)
  - APLASIA PURE RED CELL [None]
  - ENTEROCOLITIS [None]
  - ESCHERICHIA BACTERAEMIA [None]
  - FEBRILE NEUTROPENIA [None]
  - MULTIPLE MYELOMA [None]
  - NEUROPATHY [None]
  - RETICULOCYTOPENIA [None]
  - THERAPEUTIC RESPONSE DECREASED [None]
